FAERS Safety Report 12594877 (Version 1)
Quarter: 2016Q3

REPORT INFORMATION
  Report Type: Spontaneous
  Country: FR (occurrence: FR)
  Receive Date: 20160726
  Receipt Date: 20160726
  Transmission Date: 20161109
  Serious: Yes (Hospitalization)
  Sender: FDA-Public Use
  Company Number: FR-PFIZER INC-2015301117

PATIENT
  Age: 68 Year
  Sex: Male
  Weight: 91 kg

DRUGS (6)
  1. METHOTREXATE SODIUM. [Suspect]
     Active Substance: METHOTREXATE SODIUM
     Indication: ACUTE LEUKAEMIA
     Dosage: 15 MG, DAILY
     Dates: start: 20150504
  2. TASIGNA [Suspect]
     Active Substance: NILOTINIB
     Indication: ACUTE LEUKAEMIA
     Dosage: 400 MG, 2X/DAY
     Dates: start: 20150504
  3. DEXAMETHASONE. [Concomitant]
     Active Substance: DEXAMETHASONE
     Indication: ACUTE LEUKAEMIA
     Dosage: UNSPECIFIED DOSE ON D1 TO D2, D8 TO D9, D15 TO D16 AND D22 TO D23
     Dates: start: 20150504
  4. VINCRISTINE SULFATE. [Suspect]
     Active Substance: VINCRISTINE SULFATE
     Indication: ACUTE LEUKAEMIA
     Dosage: 1 MG, CYCLIC ON D1, D8, D15 AND D22
     Dates: start: 20150504
  5. DEXAMETHASONE. [Concomitant]
     Active Substance: DEXAMETHASONE
     Dosage: 4 MG ON D9, D16 AND D23
  6. CYTARABINE SANDOZ [Suspect]
     Active Substance: CYTARABINE
     Indication: ACUTE LEUKAEMIA
     Dosage: 40 MG, DAILY
     Dates: start: 20150504

REACTIONS (1)
  - Bone marrow failure [Recovered/Resolved]

NARRATIVE: CASE EVENT DATE: 201505
